FAERS Safety Report 6412040-1 (Version None)
Quarter: 2009Q4

REPORT INFORMATION
  Report Type: 
  Country: None (occurrence: None)
  Receive Date: 20091020
  Receipt Date: 20091013
  Transmission Date: 20100525
  Serious: Yes (Death, Hospitalization)
  Sender: FDA-Public Use
  Company Number: 2009US003777

PATIENT
  Age: 48 Year
  Sex: Male

DRUGS (2)
  1. PROGRAF [Suspect]
     Indication: RENAL TRANSPLANT
     Dosage: 3 G, UID/QD
     Dates: end: 20070701
  2. PREDNISONE TAB [Suspect]
     Indication: RENAL TRANSPLANT
     Dosage: 10 MG, UID/QD

REACTIONS (9)
  - ASCITES [None]
  - DRUG RESISTANCE [None]
  - GASTROINTESTINAL HAEMORRHAGE [None]
  - HAEMORRHOIDS [None]
  - HEPATOSPLENOMEGALY [None]
  - OESOPHAGEAL CANDIDIASIS [None]
  - PNEUMONIA BACTERIAL [None]
  - SEPSIS [None]
  - WEIL'S DISEASE [None]
